FAERS Safety Report 20440725 (Version 1)
Quarter: 2022Q1

REPORT INFORMATION
  Report Type: Spontaneous
  Country: CN (occurrence: CN)
  Receive Date: 20220207
  Receipt Date: 20220207
  Transmission Date: 20220423
  Serious: Yes (Other)
  Sender: FDA-Public Use
  Company Number: CN-BAXTER-2022BAX002343

PATIENT
  Age: 44 Year
  Sex: Female
  Weight: 56 kg

DRUGS (12)
  1. CYCLOPHOSPHAMIDE [Suspect]
     Active Substance: CYCLOPHOSPHAMIDE
     Indication: Invasive lobular breast carcinoma
     Dosage: 1ST AND 2ND CHEMOTHERAPY
     Route: 041
  2. CYCLOPHOSPHAMIDE [Suspect]
     Active Substance: CYCLOPHOSPHAMIDE
     Dosage: CYCLOPHOSPHAMIDE FOR INJECTION 0.95G + 0.9% SODIUM CHLORIDE INJECTION 500ML ONCE FOR 2 HOURS
     Route: 041
     Dates: start: 20220114, end: 20220114
  3. CYCLOPHOSPHAMIDE [Suspect]
     Active Substance: CYCLOPHOSPHAMIDE
     Dosage: DOSE REINTRODUCED
     Route: 041
  4. SODIUM CHLORIDE [Suspect]
     Active Substance: SODIUM CHLORIDE
     Indication: Medication dilution
     Dosage: 1ST AND 2ND CHEMOTHERAPY
     Route: 041
  5. SODIUM CHLORIDE [Suspect]
     Active Substance: SODIUM CHLORIDE
     Dosage: CYCLOPHOSPHAMIDE FOR INJECTION 0.95G + 0.9% SODIUM CHLORIDE INJECTION 500ML ONCE FOR 2 HOURS
     Route: 041
     Dates: start: 20220114, end: 20220114
  6. SODIUM CHLORIDE [Suspect]
     Active Substance: SODIUM CHLORIDE
     Dosage: DOSE REINTRODUCED
     Route: 041
  7. DOCETAXEL [Suspect]
     Active Substance: DOCETAXEL
     Indication: Invasive lobular breast carcinoma
     Dosage: 1ST AND 2ND CHEMOTHERAPY
     Route: 041
  8. DOCETAXEL [Suspect]
     Active Substance: DOCETAXEL
     Dosage: DOCETAXEL INJECTION 115 MG + 0.9% SODIUM CHLORIDE INJECTION 500ML ONCE FOR 2 HOURS
     Route: 041
     Dates: start: 20220114, end: 20220114
  9. DOCETAXEL [Suspect]
     Active Substance: DOCETAXEL
     Dosage: DOSE REINTRODUCED
     Route: 041
  10. SODIUM CHLORIDE [Suspect]
     Active Substance: SODIUM CHLORIDE
     Indication: Medication dilution
     Dosage: 1ST AND 2ND CHEMOTHERAPY
     Route: 041
  11. SODIUM CHLORIDE [Suspect]
     Active Substance: SODIUM CHLORIDE
     Dosage: DOCETAXEL INJECTION 115 MG + 0.9% SODIUM CHLORIDE INJECTION 500ML ONCE FOR 2 HOURS
     Route: 041
     Dates: start: 20220114, end: 20220114
  12. SODIUM CHLORIDE [Suspect]
     Active Substance: SODIUM CHLORIDE
     Dosage: DOSE REINTRODUCED
     Route: 041

REACTIONS (3)
  - White blood cell count decreased [Recovered/Resolved]
  - Neutrophil count decreased [Recovered/Resolved]
  - Cytopenia [Unknown]

NARRATIVE: CASE EVENT DATE: 20220120
